FAERS Safety Report 9178602 (Version 1)
Quarter: 2013Q1

REPORT INFORMATION
  Report Type: Report from Study
  Country: DE (occurrence: DE)
  Receive Date: 20130321
  Receipt Date: 20130321
  Transmission Date: 20140127
  Serious: Yes (Hospitalization)
  Sender: FDA-Public Use
  Company Number: DE-009507513-1303DEU010205

PATIENT
  Age: 46 Year
  Sex: Female
  Weight: 50 kg

DRUGS (6)
  1. VICTRELIS [Suspect]
     Indication: CHRONIC HEPATITIS C
     Dosage: 800 MG, TID
     Route: 048
     Dates: start: 20111007, end: 20111129
  2. PEGINTERFERON ALFA-2A [Suspect]
     Indication: CHRONIC HEPATITIS C
     Dosage: 180 ?G, QW
     Route: 058
     Dates: start: 20111007, end: 20111129
  3. COPEGUS [Concomitant]
     Indication: CHRONIC HEPATITIS C
     Dosage: 600 MG, UNKNOWN
     Route: 048
     Dates: start: 20111007, end: 20111129
  4. PANTOZOL [Concomitant]
     Dosage: 40 MG, BID
     Route: 048
     Dates: start: 20110801
  5. AMLODIPINE [Concomitant]
     Indication: HYPERTENSION
     Dosage: 2.5 MG, BID
     Route: 048
     Dates: start: 20110801
  6. RAMIPRIL [Concomitant]
     Indication: HYPERTENSION
     Dosage: 5 MG, BID
     Route: 048
     Dates: start: 20110801

REACTIONS (1)
  - Arterial occlusive disease [Recovered/Resolved]
